FAERS Safety Report 10371125 (Version 1)
Quarter: 2014Q3

REPORT INFORMATION
  Report Type: Spontaneous
  Country: US (occurrence: None)
  Receive Date: 20140807
  Receipt Date: 20140807
  Transmission Date: 20150326
  Serious: Yes (Hospitalization)
  Sender: FDA-Public Use
  Company Number: None

PATIENT
  Age: 63 Year
  Sex: Female
  Weight: 72.12 kg

DRUGS (1)
  1. NITROFURANTOIN MONOHYDRATE 100MG MYLAN [Suspect]
     Active Substance: NITROFURANTOIN MONOHYDRATE
     Indication: CYSTITIS
     Route: 048
     Dates: start: 20140716, end: 20140721

REACTIONS (4)
  - Chills [None]
  - Vomiting [None]
  - Body temperature increased [None]
  - Heat stroke [None]

NARRATIVE: CASE EVENT DATE: 20140721
